FAERS Safety Report 7817442-4 (Version None)
Quarter: 2011Q4

REPORT INFORMATION
  Report Type: 
  Country: None (occurrence: None)
  Receive Date: 20111017
  Receipt Date: 20111011
  Transmission Date: 20120403
  Serious: Yes (Death)
  Sender: FDA-Public Use
  Company Number: CA-ROCHE-1003747

PATIENT
  Sex: Male

DRUGS (9)
  1. DETROL [Concomitant]
  2. ZOFRAN [Concomitant]
  3. XELODA [Suspect]
     Indication: COLORECTAL CANCER METASTATIC
     Route: 048
     Dates: start: 20101201, end: 20110501
  4. TIMOLOL MALEATE [Concomitant]
  5. ATIVAN [Concomitant]
  6. DILAUDID [Concomitant]
  7. HYDROMORPHONE HCL [Concomitant]
  8. OXYCODONE HCL [Concomitant]
  9. DECADRON [Concomitant]

REACTIONS (1)
  - DEATH [None]
